FAERS Safety Report 16790501 (Version 1)
Quarter: 2019Q4

REPORT INFORMATION
  Report Type: Spontaneous
  Country: US (occurrence: US)
  Receive Date: 20190909
  Receipt Date: 20190909
  Transmission Date: 20200122
  Serious: Yes (Other)
  Sender: FDA-Public Use
  Company Number: None

PATIENT
  Age: 58 Year
  Sex: Female

DRUGS (14)
  1. IPRATROPIUM 0.03% NASAL SPRAY [Concomitant]
  2. BENZONATATE 100 MG [Concomitant]
     Active Substance: BENZONATATE
  3. NEUDEXTA 20-10 MG [Concomitant]
  4. ALPRAZOLAM 1 MG [Concomitant]
     Active Substance: ALPRAZOLAM
  5. SUCRALFATE 1 GM [Concomitant]
  6. TRAZODONE 300 MG [Concomitant]
  7. RESTASIS [Concomitant]
     Active Substance: CYCLOSPORINE
  8. ESTRADIOL 1 MG [Concomitant]
     Active Substance: ESTRADIOL
  9. LISINOPRIL/HCTZ 20/12.5 [Concomitant]
  10. VIBRYD 20 MG [Concomitant]
  11. COPAXONE [Suspect]
     Active Substance: GLATIRAMER ACETATE
     Indication: MULTIPLE SCLEROSIS
     Dosage: ?          OTHER FREQUENCY:THREE TIMES A WEEK;?
     Route: 058
     Dates: start: 20180202
  12. NYSTOP 100,000 U/GM [Concomitant]
  13. GABAPENTIN 600 MG [Concomitant]
     Active Substance: GABAPENTIN
  14. PANTOPRAZOLE 40 [Concomitant]
     Active Substance: PANTOPRAZOLE SODIUM

REACTIONS (1)
  - Injection site indentation [None]

NARRATIVE: CASE EVENT DATE: 20190909
